FAERS Safety Report 12723287 (Version 1)
Quarter: 2016Q3

REPORT INFORMATION
  Report Type: Spontaneous
  Country: FR (occurrence: FR)
  Receive Date: 20160908
  Receipt Date: 20160908
  Transmission Date: 20161109
  Serious: Yes (Disabling)
  Sender: FDA-Public Use
  Company Number: FR-ACCORD-043774

PATIENT
  Age: 72 Year
  Sex: Female

DRUGS (1)
  1. ONDANSETRON ACCORD [Suspect]
     Active Substance: ONDANSETRON
     Indication: PRODUCT USED FOR UNKNOWN INDICATION
     Dosage: FROM 01-AUG-2016 AT 05:00 PM TO 03-AUG-2016 AT 07:00 PM
     Route: 042
     Dates: start: 20160801, end: 20160803

REACTIONS (2)
  - Visual acuity reduced [Recovered/Resolved]
  - Eyelid ptosis [Recovered/Resolved]

NARRATIVE: CASE EVENT DATE: 20160802
